FAERS Safety Report 20201142 (Version 1)
Quarter: 2021Q4

REPORT INFORMATION
  Report Type: Spontaneous
  Country: FR (occurrence: FR)
  Receive Date: 20211217
  Receipt Date: 20211217
  Transmission Date: 20220303
  Serious: Yes (Death)
  Sender: FDA-Public Use
  Company Number: None

PATIENT
  Age: 56 Year
  Sex: Female
  Weight: 67 kg

DRUGS (3)
  1. METHOTREXATE [Suspect]
     Active Substance: METHOTREXATE
     Indication: Breast cancer recurrent
     Dosage: UNK
     Route: 037
     Dates: start: 20211027
  2. INNOHEP [Suspect]
     Active Substance: TINZAPARIN SODIUM
     Indication: Neoplasm malignant
     Dosage: 10000 INTERNATIONAL UNIT, QD
     Route: 058
     Dates: start: 2021
  3. KARDEGIC [Suspect]
     Active Substance: ASPIRIN DL-LYSINE
     Indication: Neoplasm malignant
     Dosage: UNK
     Route: 048
     Dates: start: 2021

REACTIONS (1)
  - Cerebral haematoma [Fatal]

NARRATIVE: CASE EVENT DATE: 20211029
